FAERS Safety Report 5964737-5 (Version None)
Quarter: 2008Q4

REPORT INFORMATION
  Report Type: 
  Country: None (occurrence: None)
  Receive Date: 20081125
  Receipt Date: 20080221
  Transmission Date: 20090506
  Serious: No
  Sender: FDA-Public Use
  Company Number: US-AMGEN-US266437

PATIENT
  Sex: Female

DRUGS (3)
  1. ENBREL [Suspect]
     Indication: RHEUMATOID ARTHRITIS
     Route: 058
     Dates: start: 20030101
  2. PLAQUENIL [Concomitant]
     Route: 048
     Dates: start: 19950101
  3. ANTIBIOTICS [Concomitant]
     Route: 065

REACTIONS (5)
  - BRONCHITIS [None]
  - INFLUENZA [None]
  - PNEUMONIA [None]
  - RHINORRHOEA [None]
  - SINUS CONGESTION [None]
